FAERS Safety Report 7491809-9 (Version None)
Quarter: 2011Q2

REPORT INFORMATION
  Report Type: 
  Country: None (occurrence: None)
  Receive Date: 20110519
  Receipt Date: 20110511
  Transmission Date: 20111010
  Serious: Yes (Other)
  Sender: FDA-Public Use
  Company Number: US-MERCK-1105USA01158

PATIENT
  Age: 66 Year
  Sex: Female

DRUGS (1)
  1. SINGULAIR [Suspect]
     Route: 048
     Dates: start: 20110426, end: 20110504

REACTIONS (2)
  - DEPRESSED MOOD [None]
  - SUICIDAL IDEATION [None]
